FAERS Safety Report 18973481 (Version 2)
Quarter: 2021Q1

REPORT INFORMATION
  Report Type: Report from Study
  Country: US (occurrence: US)
  Receive Date: 20210305
  Receipt Date: 20210309
  Transmission Date: 20210420
  Serious: No
  Sender: FDA-Public Use
  Company Number: US-SA-2021SA072949

PATIENT
  Age: 49 Year
  Sex: Male

DRUGS (1)
  1. THYROTROPIN ALFA [Suspect]
     Active Substance: THYROTROPIN ALFA
     Dosage: 1.1 MG, QD
     Route: 030
     Dates: start: 20210222, end: 20210223

REACTIONS (1)
  - Blood thyroid stimulating hormone decreased [Recovering/Resolving]

NARRATIVE: CASE EVENT DATE: 2021
